FAERS Safety Report 4627176-5 (Version None)
Quarter: 2005Q2

REPORT INFORMATION
  Report Type: 
  Country: None (occurrence: None)
  Receive Date: 20050405
  Receipt Date: 20050323
  Transmission Date: 20051028
  Serious: Yes (Death)
  Sender: FDA-Public Use
  Company Number: JP-ROCHE-399699

PATIENT
  Age: 4 Year
  Sex: Female

DRUGS (4)
  1. TAMIFLU [Suspect]
     Route: 048
     Dates: start: 20050307, end: 20050308
  2. CALONAL [Concomitant]
     Route: 048
  3. PERIACTIN [Concomitant]
     Route: 048
  4. MUCOSAL [Concomitant]
     Route: 048

REACTIONS (4)
  - CARDIO-RESPIRATORY ARREST [None]
  - FEELING COLD [None]
  - PAIN IN EXTREMITY [None]
  - SUDDEN DEATH [None]
